FAERS Safety Report 6379628-8 (Version None)
Quarter: 2009Q3

REPORT INFORMATION
  Report Type: 
  Country: None (occurrence: None)
  Receive Date: 20090924
  Receipt Date: 20090924
  Transmission Date: 20100115
  Serious: Yes (Hospitalization)
  Sender: FDA-Public Use
  Company Number: None

PATIENT
  Sex: Female
  Weight: 63.2 kg

DRUGS (3)
  1. ONCASPAR [Suspect]
     Dosage: 4250 IU
     Dates: end: 20090522
  2. VINCRISTINE SULFATE [Suspect]
     Dosage: 2 MG
     Dates: end: 20090521
  3. METHOTREXATE [Suspect]
     Dosage: 185 MG
     Dates: end: 20090521

REACTIONS (4)
  - BLOOD AMYLASE DECREASED [None]
  - BLOOD GLUCOSE INCREASED [None]
  - LIPASE INCREASED [None]
  - MUCOSAL INFLAMMATION [None]
